FAERS Safety Report 6506413-6 (Version None)
Quarter: 2009Q4

REPORT INFORMATION
  Report Type: 
  Country: None (occurrence: None)
  Receive Date: 20091220
  Receipt Date: 20091214
  Transmission Date: 20100525
  Serious: Yes (Death, Life-Threatening, Hospitalization)
  Sender: FDA-Public Use
  Company Number: DE-BRISTOL-MYERS SQUIBB COMPANY-14896450

PATIENT
  Age: 74 Year
  Sex: Female

DRUGS (8)
  1. APROVEL FILM-COATED TABS 150 MG [Suspect]
     Route: 048
     Dates: end: 20090902
  2. METOPROLOL TARTRATE [Suspect]
     Dosage: FORM=TABS
     Route: 048
     Dates: end: 20090910
  3. HALOPERIDOL [Suspect]
     Dosage: FORM=TABSL;25AUG09-30AUG:4MG;31AUG-02SEP:5MG;03SEP-07SEP:2MG
     Route: 048
     Dates: start: 20090825, end: 20090907
  4. JATROSOM N [Suspect]
     Dosage: FORM=TABS;21AUG09-25AUG:10-50MG/D;26AUG-08SEP:60MG/D (14 DAYS)
     Route: 048
     Dates: start: 20090821, end: 20090908
  5. PANTOPRAZOLE [Concomitant]
     Dates: start: 20090907, end: 20090908
  6. SIMVASTATIN [Concomitant]
     Dates: end: 20090910
  7. MARCUMAR [Concomitant]
     Dates: end: 20090908
  8. IBUPROFEN [Concomitant]
     Dates: start: 20090907, end: 20090908

REACTIONS (4)
  - DEATH [None]
  - HYPONATRAEMIA [None]
  - MUSCLE SPASMS [None]
  - NERVOUS SYSTEM DISORDER [None]
